FAERS Safety Report 7437484-0 (Version None)
Quarter: 2011Q2

REPORT INFORMATION
  Report Type: 
  Country: None (occurrence: None)
  Receive Date: 20110426
  Receipt Date: 20110414
  Transmission Date: 20111010
  Serious: Yes (Hospitalization)
  Sender: FDA-Public Use
  Company Number: PHHY2011KR31355

PATIENT

DRUGS (2)
  1. ASPIRIN [Suspect]
     Dosage: UNK UKN, UNK
  2. WARFARIN [Suspect]
     Dosage: UNK UKN, UNK

REACTIONS (16)
  - HEART RATE INCREASED [None]
  - HAEMOGLOBIN DECREASED [None]
  - INTRA-ABDOMINAL PRESSURE INCREASED [None]
  - ABDOMINAL PAIN LOWER [None]
  - PARAESTHESIA [None]
  - EXTRAVASATION [None]
  - ABDOMINAL COMPARTMENT SYNDROME [None]
  - ABDOMINAL MASS [None]
  - RETROPERITONEAL HAEMATOMA [None]
  - BLOOD PRESSURE DECREASED [None]
  - ANURIA [None]
  - GROIN PAIN [None]
  - RETROPERITONEAL HAEMORRHAGE [None]
  - FREQUENT BOWEL MOVEMENTS [None]
  - NEUROPATHY PERIPHERAL [None]
  - DIZZINESS [None]
